FAERS Safety Report 16342715 (Version 1)
Quarter: 2019Q2

REPORT INFORMATION
  Report Type: Report from Study
  Country: US (occurrence: US)
  Receive Date: 20190522
  Receipt Date: 20190522
  Transmission Date: 20190711
  Serious: Yes (Other)
  Sender: FDA-Public Use
  Company Number: US-JNJFOC-20190526914

PATIENT
  Sex: Male

DRUGS (10)
  1. IRON DEXTRAN [Concomitant]
     Active Substance: IRON DEXTRAN
  2. AMLODIPINE BESYLATE. [Concomitant]
     Active Substance: AMLODIPINE BESYLATE
  3. SIMVASTATIN. [Concomitant]
     Active Substance: SIMVASTATIN
  4. ACYCLOVIR. [Concomitant]
     Active Substance: ACYCLOVIR
  5. CELEBREX [Concomitant]
     Active Substance: CELECOXIB
     Route: 065
  6. DEXTRIN [Concomitant]
     Active Substance: ICODEXTRIN
  7. VITAMIN B12 [Concomitant]
     Active Substance: CYANOCOBALAMIN
  8. IMBRUVICA [Suspect]
     Active Substance: IBRUTINIB
     Indication: CHRONIC LYMPHOCYTIC LEUKAEMIA
     Route: 048
     Dates: start: 20180515
  9. GABAPENTIN. [Concomitant]
     Active Substance: GABAPENTIN
  10. COENZYME Q10 [Concomitant]
     Active Substance: UBIDECARENONE

REACTIONS (1)
  - Gastric haemorrhage [Unknown]
